FAERS Safety Report 8740256 (Version 3)
Quarter: 2012Q4

REPORT INFORMATION
  Report Type: 
  Country: JP (occurrence: JP)
  Receive Date: 20120823
  Receipt Date: 20120921
  Transmission Date: 20130627
  Serious: Yes (Life-Threatening, Hospitalization, Other)
  Sender: FDA-Public Use
  Company Number: JP-PFIZER INC-2012203670

PATIENT
  Age: 78 Year
  Sex: Male
  Weight: 55 kg

DRUGS (4)
  1. LYRICA [Suspect]
     Indication: HERPES ZOSTER
     Dosage: 75 mg, 2x/day
     Route: 048
     Dates: end: 20120810
  2. FAMVIR [Suspect]
     Indication: HERPES ZOSTER
     Dosage: UNK
     Route: 048
     Dates: end: 20120810
  3. SORELMON [Suspect]
     Dosage: UNK
     Route: 048
     Dates: end: 20120810
  4. NEUROTROPIN [Concomitant]
     Dosage: UNK
     Route: 048
     Dates: end: 20120810

REACTIONS (4)
  - Altered state of consciousness [Recovered/Resolved]
  - Renal impairment [Recovered/Resolved]
  - Anaemia [Recovered/Resolved]
  - Rash [None]
